FAERS Safety Report 7283986-X (Version None)
Quarter: 2011Q1

REPORT INFORMATION
  Report Type: 
  Country: None (occurrence: None)
  Receive Date: 20110131
  Receipt Date: 20110114
  Transmission Date: 20110831
  Serious: Yes (Other)
  Sender: FDA-Public Use
  Company Number: 025027

PATIENT
  Sex: Female
  Weight: 99.7913 kg

DRUGS (6)
  1. IMMUNOSUPPRESSIVE AGENTS [Concomitant]
  2. CIMZIA [Suspect]
     Indication: CROHN'S DISEASE
     Dosage: 400 MG 1X/2 WEEKS SUBCUTANEOUS
     Route: 058
     Dates: start: 20101006, end: 20101229
  3. CORTICOSTEROIDS [Concomitant]
  4. DIAZIDE [Concomitant]
  5. OMEPRAZOLE [Concomitant]
  6. SYNTHROID [Concomitant]

REACTIONS (8)
  - SWELLING FACE [None]
  - MENTAL STATUS CHANGES [None]
  - RASH MACULO-PAPULAR [None]
  - MYALGIA [None]
  - PRURITUS [None]
  - ASTHENIA [None]
  - SKIN DISORDER [None]
  - PARAESTHESIA [None]
